FAERS Safety Report 4815006-8 (Version None)
Quarter: 2005Q4

REPORT INFORMATION
  Report Type: 
  Country: None (occurrence: None)
  Receive Date: 20051026
  Receipt Date: 20051012
  Transmission Date: 20060501
  Serious: Yes (Other)
  Sender: FDA-Public Use
  Company Number: JP_050907695

PATIENT
  Age: 63 Year
  Sex: Male

DRUGS (3)
  1. GEMZAR [Suspect]
     Indication: PANCREATIC CARCINOMA
     Dosage: 1400 MG OTHER
     Route: 050
     Dates: start: 20050920
  2. DUROTEP (FENTANYL) [Concomitant]
  3. MS CONTIN [Concomitant]

REACTIONS (1)
  - HALLUCINATION, VISUAL [None]
